FAERS Safety Report 26101888 (Version 1)
Quarter: 2025Q4

REPORT INFORMATION
  Report Type: Spontaneous
  Country: JP (occurrence: JP)
  Receive Date: 20251128
  Receipt Date: 20251128
  Transmission Date: 20260117
  Serious: Yes (Hospitalization)
  Sender: SANDOZ
  Company Number: JP-PFIZER INC-PV202300193746

PATIENT
  Age: 60 Year
  Sex: Female

DRUGS (1)
  1. METHOTREXATE [Suspect]
     Active Substance: METHOTREXATE
     Indication: Rheumatoid arthritis
     Dosage: UNK
     Route: 048

REACTIONS (2)
  - Hepatic neoplasm [Recovered/Resolved]
  - B-cell lymphoma [Recovered/Resolved]
